FAERS Safety Report 4277464-X (Version None)
Quarter: 2004Q1

REPORT INFORMATION
  Report Type: 
  Country: None (occurrence: None)
  Receive Date: 20040122
  Receipt Date: 20040112
  Transmission Date: 20041129
  Serious: Yes (Hospitalization)
  Sender: FDA-Public Use
  Company Number: FR-ROCHE-355778

PATIENT
  Age: 40 Year
  Sex: Male

DRUGS (3)
  1. VALCYTE [Suspect]
     Indication: HIV INFECTION
     Route: 048
     Dates: start: 20030930, end: 20031010
  2. VIRAMUNE [Suspect]
     Indication: HIV INFECTION
     Route: 048
     Dates: start: 20030911, end: 20031007
  3. TAZOCILLINE [Suspect]
     Indication: HIV INFECTION
     Route: 042
     Dates: start: 20030928, end: 20031010

REACTIONS (7)
  - CHOLESTASIS [None]
  - HYPERSENSITIVITY [None]
  - PYREXIA [None]
  - RASH MACULO-PAPULAR [None]
  - RENAL FAILURE [None]
  - THROMBOCYTOPENIA [None]
  - TOXIC SKIN ERUPTION [None]
